FAERS Safety Report 15028769 (Version 1)
Quarter: 2018Q2

REPORT INFORMATION
  Report Type: Spontaneous
  Country: US (occurrence: US)
  Receive Date: 20180527
  Receipt Date: 20180527
  Transmission Date: 20180711
  Serious: Yes (Other)
  Sender: FDA-Public Use
  Company Number: None

PATIENT
  Age: 83 Year
  Sex: Female
  Weight: 79.38 kg

DRUGS (16)
  1. LYRICA [Concomitant]
     Active Substance: PREGABALIN
  2. ESOMEPRA [Concomitant]
     Active Substance: ESOMEPRAZOLE
  3. CYANOCOBALAMIN. [Concomitant]
     Active Substance: CYANOCOBALAMIN
  4. LORATADINE. [Concomitant]
     Active Substance: LORATADINE
  5. FERROUS SULFATE. [Concomitant]
     Active Substance: FERROUS SULFATE
  6. OYSTER SHELL [Concomitant]
     Active Substance: OSTREA EDULIS SHELL
  7. FLUTICASONE. [Concomitant]
     Active Substance: FLUTICASONE
  8. FUROSEMIDE. [Concomitant]
     Active Substance: FUROSEMIDE
  9. ZOLPDIEM [Concomitant]
  10. ELIQUIS [Concomitant]
     Active Substance: APIXABAN
  11. POTASSIUM CL [Concomitant]
     Active Substance: POTASSIUM CHLORIDE
  12. EYLEA [Suspect]
     Active Substance: AFLIBERCEPT
     Indication: MACULAR DEGENERATION
     Dosage: 1 INJECTION EVERY 6 WKS?INJECTION EVERY 5- 6 WKS
     Dates: end: 20180411
  13. BUSPIRONE [Concomitant]
     Active Substance: BUSPIRONE HYDROCHLORIDE
  14. OXYCODONE [Concomitant]
     Active Substance: OXYCODONE
  15. PRAMIPEXOLE. [Concomitant]
     Active Substance: PRAMIPEXOLE
  16. VITAMIN D3 [Concomitant]
     Active Substance: CHOLECALCIFEROL

REACTIONS (2)
  - Eye infection [None]
  - Visual impairment [None]

NARRATIVE: CASE EVENT DATE: 20180410
